FAERS Safety Report 23028512 (Version 1)
Quarter: 2023Q4

REPORT INFORMATION
  Report Type: Spontaneous
  Country: US (occurrence: US)
  Receive Date: 20231004
  Receipt Date: 20231004
  Transmission Date: 20240109
  Serious: No
  Sender: FDA-Public Use
  Company Number: US-ABBVIE-5435072

PATIENT
  Sex: Female

DRUGS (1)
  1. IMBRUVICA [Suspect]
     Active Substance: IBRUTINIB
     Indication: Product used for unknown indication
     Dosage: FROM STRENGTH WAS 280 MILLIGRAM.?TAKE ONE TAB BY MOUTH ONCE DAILY.
     Route: 048
     Dates: start: 20210503

REACTIONS (1)
  - Osteoporosis [Unknown]
